FAERS Safety Report 9988575 (Version 2)
Quarter: 2014Q1

REPORT INFORMATION
  Report Type: Spontaneous
  Country: NO (occurrence: NO)
  Receive Date: 20140310
  Receipt Date: 20140310
  Transmission Date: 20141002
  Serious: Yes (Death, Other)
  Sender: FDA-Public Use
  Company Number: NO-AMGEN-NORSP2014008459

PATIENT
  Age: 70 Year
  Sex: Male

DRUGS (2)
  1. PROLIA [Suspect]
     Indication: NEOPLASM MALIGNANT
     Dosage: 60 MG, UNK
     Route: 065
  2. PROLIA [Suspect]
     Indication: HYPERCALCAEMIA

REACTIONS (4)
  - Neoplasm malignant [Fatal]
  - Terminal state [Recovering/Resolving]
  - Blood albumin decreased [Recovering/Resolving]
  - Diarrhoea [Recovering/Resolving]
